FAERS Safety Report 17136564 (Version 1)
Quarter: 2019Q4

REPORT INFORMATION
  Report Type: Report from Study
  Country: CA (occurrence: CA)
  Receive Date: 20191210
  Receipt Date: 20191210
  Transmission Date: 20200122
  Serious: Yes (Disabling, Other)
  Sender: FDA-Public Use
  Company Number: CA-JNJFOC-20181027391

PATIENT
  Age: 60 Year
  Sex: Female
  Weight: 65 kg

DRUGS (1)
  1. STELARA [Suspect]
     Active Substance: USTEKINUMAB
     Indication: CROHN^S DISEASE
     Dosage: STRENGTH = 90 MG
     Route: 058
     Dates: start: 20180628

REACTIONS (9)
  - Arthritis [Not Recovered/Not Resolved]
  - Abdominal pain [Unknown]
  - Pelvic prolapse [Unknown]
  - Genital pain [Unknown]
  - Perineal pain [Not Recovered/Not Resolved]
  - Oedema genital [Unknown]
  - Alopecia [Not Recovered/Not Resolved]
  - Calcification of muscle [Recovering/Resolving]
  - Swelling [Not Recovered/Not Resolved]

NARRATIVE: CASE EVENT DATE: 201911
